FAERS Safety Report 8483802 (Version 2)
Quarter: 2012Q4

REPORT INFORMATION
  Report Type: Report from Study
  Country: DE (occurrence: DE)
  Receive Date: 20120329
  Receipt Date: 20120911
  Transmission Date: 20130627
  Serious: Yes (Hospitalization)
  Sender: FDA-Public Use
  Company Number: DE-ROCHE-1050579

PATIENT
  Age: 72 Year
  Sex: Female
  Weight: 55 kg

DRUGS (5)
  1. ROACTEMRA [Suspect]
     Indication: RHEUMATOID ARTHRITIS
     Route: 042
     Dates: start: 20110421
  2. ROACTEMRA [Suspect]
     Route: 042
     Dates: start: 20110908
  3. ROACTEMRA [Suspect]
     Route: 042
     Dates: start: 20111006
  4. ROACTEMRA [Suspect]
     Route: 042
     Dates: start: 20111129
  5. ROACTEMRA [Suspect]
     Route: 042
     Dates: start: 20111220

REACTIONS (3)
  - Lacunar infarction [Recovered/Resolved]
  - Aphasia [Recovered/Resolved]
  - Apraxia [Recovered/Resolved]
